FAERS Safety Report 6608454-7 (Version None)
Quarter: 2010Q1

REPORT INFORMATION
  Report Type: 
  Country: None (occurrence: None)
  Receive Date: 20100226
  Receipt Date: 20100226
  Transmission Date: 20100710
  Serious: No
  Sender: FDA-Public Use
  Company Number: None

PATIENT
  Age: 38 Year
  Sex: Male
  Weight: 90.7194 kg

DRUGS (8)
  1. NIACIN [Suspect]
     Dosage: 500ER PO
     Route: 048
  2. LORAZEPAM [Concomitant]
  3. TERBINAFINE HCL [Concomitant]
  4. INFLUENZA VACC [Concomitant]
  5. IBUPROFEN [Concomitant]
  6. H1N1 [Concomitant]
  7. CLARITIN [Concomitant]
  8. SUDAFED 12 HOUR [Concomitant]

REACTIONS (1)
  - FLUSHING [None]
